FAERS Safety Report 21315764 (Version 1)
Quarter: 2022Q3

REPORT INFORMATION
  Report Type: Report from Study
  Country: US (occurrence: US)
  Receive Date: 20220909
  Receipt Date: 20220909
  Transmission Date: 20221026
  Serious: Yes (Hospitalization)
  Sender: FDA-Public Use
  Company Number: US-TEVA-2022-US-2071431

PATIENT
  Age: 4 Decade
  Sex: Female

DRUGS (6)
  1. PREDNISONE [Suspect]
     Active Substance: PREDNISONE
     Indication: Product used for unknown indication
     Route: 065
  2. LUPKYNIS [Suspect]
     Active Substance: VOCLOSPORIN
     Indication: Lupus nephritis
     Dosage: 47.4 MILLIGRAM DAILY;
     Route: 048
     Dates: start: 20220624
  3. ATENOLOL [Concomitant]
     Active Substance: ATENOLOL
     Indication: Product used for unknown indication
     Dosage: ONE TABLET
  4. ATENOLOL [Concomitant]
     Active Substance: ATENOLOL
     Dosage: TWO TABLETS
  5. LOSARTAN [Concomitant]
     Active Substance: LOSARTAN
     Indication: Product used for unknown indication
     Dosage: ONE TABLET
  6. LOSARTAN [Concomitant]
     Active Substance: LOSARTAN
     Dosage: TWO TABLETS

REACTIONS (1)
  - Eye swelling [Unknown]
